FAERS Safety Report 18410279 (Version 1)
Quarter: 2020Q4

REPORT INFORMATION
  Report Type: Spontaneous
  Country: DE (occurrence: DE)
  Receive Date: 20201021
  Receipt Date: 20201021
  Transmission Date: 20210114
  Serious: Yes (Other)
  Sender: FDA-Public Use
  Company Number: DE-PFIZER INC-2020331170

PATIENT
  Age: 65 Year
  Sex: Female
  Weight: 90 kg

DRUGS (24)
  1. TOCILIZUMAB. [Suspect]
     Active Substance: TOCILIZUMAB
     Dosage: UNK
     Route: 042
  2. PREDNISOLONE. [Suspect]
     Active Substance: PREDNISOLONE
     Dosage: 5 MG
  3. METHOTREXATE SODIUM. [Suspect]
     Active Substance: METHOTREXATE SODIUM
     Dosage: 20 MILLIGRAM, QW
  4. METHOTREXATE SODIUM. [Suspect]
     Active Substance: METHOTREXATE SODIUM
     Dosage: UNK
     Dates: start: 201506
  5. RITUXIMAB. [Suspect]
     Active Substance: RITUXIMAB
     Dosage: 2 MILLIGRAM
     Dates: start: 201312
  6. PREDNISOLONE. [Suspect]
     Active Substance: PREDNISOLONE
     Dosage: 17.5 MG
     Dates: start: 201506
  7. ABATACEPT [Suspect]
     Active Substance: ABATACEPT
     Dosage: UNK
     Route: 042
     Dates: start: 201410
  8. RITUXIMAB. [Suspect]
     Active Substance: RITUXIMAB
     Dosage: 1 G
     Dates: start: 201307
  9. PREDNISOLONE. [Suspect]
     Active Substance: PREDNISOLONE
     Dosage: 20 MG, DAILY
     Dates: start: 201307
  10. PREDNISOLONE. [Suspect]
     Active Substance: PREDNISOLONE
     Dosage: 10 MG
     Dates: start: 201602
  11. PREDNISOLONE. [Suspect]
     Active Substance: PREDNISOLONE
     Dosage: 10 MG
     Dates: start: 201612
  12. ABATACEPT [Suspect]
     Active Substance: ABATACEPT
     Dosage: UNK
     Dates: start: 201505
  13. LANTAREL [Suspect]
     Active Substance: METHOTREXATE SODIUM
     Dosage: 7.5 MG, WEEKLY
     Dates: start: 201410
  14. METHOTREXATE SODIUM. [Suspect]
     Active Substance: METHOTREXATE SODIUM
     Dosage: UNK
     Dates: start: 201505
  15. METHOTREXATE SODIUM. [Suspect]
     Active Substance: METHOTREXATE SODIUM
     Dosage: 7.5 MG, WEEKLY
     Route: 058
     Dates: start: 20160215
  16. PREDNISOLONE. [Suspect]
     Active Substance: PREDNISOLONE
     Dosage: 50 MG
  17. LANTAREL [Suspect]
     Active Substance: METHOTREXATE SODIUM
     Dosage: 20 MG, WEEKLY
     Route: 058
  18. RITUXIMAB. [Suspect]
     Active Substance: RITUXIMAB
     Dosage: 1 GRAM, 2X
     Dates: start: 201312
  19. CERTOLIZUMAB [Suspect]
     Active Substance: CERTOLIZUMAB
     Dosage: 400 MG
     Route: 058
     Dates: start: 20160215, end: 201708
  20. METHOTREXATE SODIUM. [Suspect]
     Active Substance: METHOTREXATE SODIUM
     Dosage: 7.5 MG, WEEKLY
     Dates: start: 201410
  21. ADALIMUMAB [Suspect]
     Active Substance: ADALIMUMAB
     Indication: SPONDYLITIS
     Dosage: 40 MG, 2X/WEEK
     Route: 058
  22. ABATACEPT [Suspect]
     Active Substance: ABATACEPT
     Dosage: UNK
     Dates: start: 201506
  23. LANTAREL [Suspect]
     Active Substance: METHOTREXATE SODIUM
     Dosage: UNK
     Dates: start: 201506
  24. ADALIMUMAB [Suspect]
     Active Substance: ADALIMUMAB
     Dosage: 40 MILLIGRAM, BIWEEKLY
     Route: 058
     Dates: start: 201307

REACTIONS (4)
  - Hypertensive crisis [Unknown]
  - Disease recurrence [Unknown]
  - Haematoma [Unknown]
  - Drug ineffective [Unknown]

NARRATIVE: CASE EVENT DATE: 201303
